FAERS Safety Report 4613701-7 (Version None)
Quarter: 2005Q1

REPORT INFORMATION
  Report Type: 
  Country: None (occurrence: None)
  Receive Date: 20050318
  Receipt Date: 20050318
  Transmission Date: 20050727
  Serious: Yes (Hospitalization)
  Sender: FDA-Public Use
  Company Number: None

PATIENT
  Age: 21 Year
  Sex: Male
  Weight: 51.7101 kg

DRUGS (3)
  1. PIPERACILLIN + TAZOBACTAM  3.375 GM Q 6 HOURS [Suspect]
     Indication: DECUBITUS ULCER
     Dosage: 3.375 GM  Q  6 HOURS
  2. PIPERACILLIN + TAZOBACTAM  3.375 GM Q 6 HOURS [Suspect]
     Indication: OSTEOMYELITIS
     Dosage: 3.375 GM  Q  6 HOURS
  3. VANCOMYCIN [Concomitant]

REACTIONS (4)
  - DRUG HYPERSENSITIVITY [None]
  - HEPATIC ENZYME INCREASED [None]
  - NEUTROPENIA [None]
  - THROMBOCYTOPENIA [None]
